FAERS Safety Report 11184112 (Version 2)
Quarter: 2015Q2

REPORT INFORMATION
  Report Type: Report from Study
  Country: AU (occurrence: AU)
  Receive Date: 20150612
  Receipt Date: 20150615
  Transmission Date: 20150821
  Serious: Yes (Death, Other)
  Sender: FDA-Public Use
  Company Number: PHHY2015AU069712

PATIENT
  Sex: Female

DRUGS (1)
  1. CLOZARIL [Suspect]
     Active Substance: CLOZAPINE
     Indication: SCHIZOPHRENIA
     Dosage: 125 OT, UNK
     Route: 048
     Dates: start: 20140221

REACTIONS (3)
  - Procedural complication [Unknown]
  - Cardio-respiratory arrest [Fatal]
  - Pneumonia aspiration [Fatal]
